FAERS Safety Report 5508497-0 (Version None)
Quarter: 2007Q4

REPORT INFORMATION
  Report Type: 
  Country: None (occurrence: None)
  Receive Date: 20071031
  Receipt Date: 20070730
  Transmission Date: 20080405
  Serious: No
  Sender: FDA-Public Use
  Company Number: 200712538BWH

PATIENT
  Age: 44 Year
  Sex: Male
  Weight: 71.6683 kg

DRUGS (5)
  1. NEXAVAR [Suspect]
     Indication: HEPATIC NEOPLASM MALIGNANT
     Dosage: 400 MG, BID, ORAL
     Route: 048
     Dates: start: 20070727
  2. PERCOCET [Concomitant]
  3. NADOLOL [Concomitant]
  4. PREVACID [Concomitant]
  5. ULTRAM [Concomitant]

REACTIONS (7)
  - ABDOMINAL PAIN [None]
  - ARTHRALGIA [None]
  - HEPATIC PAIN [None]
  - JOINT SWELLING [None]
  - OEDEMA PERIPHERAL [None]
  - RENAL PAIN [None]
  - SOMNOLENCE [None]
